FAERS Safety Report 8429637 (Version 1)
Quarter: 2013Q1

REPORT INFORMATION
  Report Type: Spontaneous
  Country: None (occurrence: None)
  Receive Date: 20120215
  Receipt Date: 20130329
  Transmission Date: 20140127
  Serious: Yes (Hospitalization, Other)
  Sender: FDA-Public Use
  Company Number: AUR-APL-2012-00839

PATIENT
  Age: 47 Year
  Sex: Female

DRUGS (6)
  1. SERTRALINE HYDROCHLORIDE [Suspect]
     Indication: OBSESSIVE-COMPULSIVE DISORDER
     Dosage: 100 MG, 1 D
  2. QUETIAPINE FUMARATE [Suspect]
     Indication: PSYCHOTIC DISORDER
     Dosage: 800 MG, 1 D, UNKNOWN
  3. BIPERIDEN (BIPERIDEN) [Concomitant]
  4. ZIPRASIDONE (ZIPRASIDONE) [Concomitant]
  5. VALPROATE [Concomitant]
  6. CLONAZEPAM (CLONAZEPAM) (CLONAZEPAM) [Concomitant]

REACTIONS (2)
  - Pleurothotonus [None]
  - Pleurothotonus [None]
